FAERS Safety Report 8959962 (Version 3)
Quarter: 2013Q1

REPORT INFORMATION
  Report Type: Spontaneous
  Country: US (occurrence: US)
  Receive Date: 20121212
  Receipt Date: 20130121
  Transmission Date: 20140127
  Serious: Yes (Hospitalization)
  Sender: FDA-Public Use
  Company Number: US-VIROPHARMA INCORPORATED-20121206CINRY3720

PATIENT
  Age: 33 Year
  Sex: Female

DRUGS (5)
  1. CINRYZE (C1 ESTERASE INHIBITOR (HUMAN)) [Suspect]
     Indication: HEREDITARY ANGIOEDEMA
     Dates: start: 200903
  2. BERINERT [Concomitant]
     Indication: HEREDITARY ANGIOEDEMA
     Dosage: UNKNOWN
     Route: 065
  3. FIRAZYR [Concomitant]
     Indication: HEREDITARY ANGIOEDEMA
     Dosage: UNKNOWN
     Route: 065
  4. XARELTO [Concomitant]
     Indication: THROMBOSIS PROPHYLAXIS
     Route: 065
  5. TYLENOL 3 [Concomitant]
     Indication: PROCEDURAL PAIN
     Dosage: UNKNOWN
     Route: 065

REACTIONS (5)
  - Hypovolaemic shock [Recovered/Resolved]
  - Arthritis infective [Recovered/Resolved]
  - Arthropathy [Recovered/Resolved]
  - Aspiration joint [Recovered/Resolved]
  - Hereditary angioedema [Recovered/Resolved]
